FAERS Safety Report 7493267-7 (Version None)
Quarter: 2011Q2

REPORT INFORMATION
  Report Type: 
  Country: None (occurrence: None)
  Receive Date: 20110520
  Receipt Date: 20110517
  Transmission Date: 20111010
  Serious: Yes (Death)
  Sender: FDA-Public Use
  Company Number: DK-PFIZER INC-2011106194

PATIENT
  Age: 39 Year
  Sex: Male
  Weight: 97 kg

DRUGS (6)
  1. ZYPREXA [Suspect]
     Indication: DEPRESSION SUICIDAL
     Dosage: 5 MG, 2X/DAY
     Route: 048
  2. OXAZEPAM [Suspect]
     Route: 048
  3. DIAZEPAM [Concomitant]
  4. VENLAFAXINE [Concomitant]
  5. MORPHINE [Concomitant]
  6. LYRICA [Suspect]
     Route: 048

REACTIONS (1)
  - EOSINOPHILIC MYOCARDITIS [None]
